FAERS Safety Report 4860942-X (Version None)
Quarter: 2005Q4

REPORT INFORMATION
  Report Type: 
  Country: None (occurrence: None)
  Receive Date: 20051220
  Receipt Date: 20051209
  Transmission Date: 20060501
  Serious: Yes (Death, Other)
  Sender: FDA-Public Use
  Company Number: CA-BRISTOL-MYERS SQUIBB COMPANY-13217898

PATIENT
  Age: 99 Year
  Sex: Male

DRUGS (2)
  1. TEQUIN [Suspect]
     Route: 048
  2. VITAMINS [Concomitant]

REACTIONS (10)
  - BLOOD CREATININE [None]
  - BLOOD GLUCOSE INCREASED [None]
  - CEREBROVASCULAR ACCIDENT [None]
  - CONFUSIONAL STATE [None]
  - DEATH [None]
  - HYPERGLYCAEMIA [None]
  - HYPEROSMOLAR STATE [None]
  - POLYDIPSIA [None]
  - POLYURIA [None]
  - RENAL IMPAIRMENT [None]
